FAERS Safety Report 8173463 (Version 2)
Quarter: 2013Q2

REPORT INFORMATION
  Report Type: Spontaneous
  Country: US (occurrence: US)
  Receive Date: 20111009
  Receipt Date: 20130627
  Transmission Date: 20140414
  Serious: No
  Sender: FDA-Public Use
  Company Number: US-B.I. PHARMACEUTICALS,INC./RIDGEFIELD-2011-BP-23262BP

PATIENT
  Age: 90 Year
  Sex: Female

DRUGS (5)
  1. PRADAXA [Suspect]
     Indication: ATRIAL FIBRILLATION
     Dosage: 300 MG
     Route: 048
     Dates: start: 20110710
  2. PRADAXA [Suspect]
     Route: 048
  3. TOPROL [Concomitant]
     Indication: HYPERTENSION
     Dates: start: 2000
  4. SYNTHROID [Concomitant]
     Indication: HYPOTHYROIDISM
     Dates: start: 2010
  5. CALCIUM [Concomitant]
     Indication: ROUTINE HEALTH MAINTENANCE
     Dates: start: 2005

REACTIONS (4)
  - Vomiting [Recovered/Resolved]
  - Abdominal distension [Unknown]
  - Contusion [Unknown]
  - Gingival bleeding [Unknown]
